FAERS Safety Report 13728678 (Version 3)
Quarter: 2017Q3

REPORT INFORMATION
  Report Type: Spontaneous
  Country: IT (occurrence: IT)
  Receive Date: 20170707
  Receipt Date: 20170808
  Transmission Date: 20171127
  Serious: Yes (Other)
  Sender: FDA-Public Use
  Company Number: IT-ACCORD-053247

PATIENT
  Age: 62 Year
  Sex: Female
  Weight: 56 kg

DRUGS (2)
  1. GEMCITABINE/GEMCITABINE HYDROCHLORIDE [Suspect]
     Active Substance: GEMCITABINE\GEMCITABINE HYDROCHLORIDE
     Indication: ADENOCARCINOMA PANCREAS
     Dosage: ABRAXANE/GEMCITABINE (DAY 1-8-15) CYCLE 1
     Route: 042
     Dates: start: 20160509
  2. ABRAXANE [Suspect]
     Active Substance: PACLITAXEL
     Indication: ADENOCARCINOMA PANCREAS
     Dosage: ABRAXANE/GEMCITABINE (DAY 1-8-15) CYCLE 1
     Route: 042
     Dates: start: 20160509

REACTIONS (6)
  - Hypertransaminasaemia [Recovering/Resolving]
  - Thrombocytosis [Recovering/Resolving]
  - Paraesthesia [Not Recovered/Not Resolved]
  - Oedema peripheral [Recovering/Resolving]
  - Anaemia [Not Recovered/Not Resolved]
  - Deep vein thrombosis [None]

NARRATIVE: CASE EVENT DATE: 20160516
